FAERS Safety Report 4965543-0 (Version None)
Quarter: 2006Q1

REPORT INFORMATION
  Report Type: 
  Country: None (occurrence: None)
  Receive Date: 20060201
  Receipt Date: 20051206
  Transmission Date: 20060701
  Serious: No
  Sender: FDA-Public Use
  Company Number: 2005PV005488

PATIENT
  Age: 53 Year
  Sex: Female
  Weight: 136.5327 kg

DRUGS (2)
  1. BYETTA [Suspect]
     Indication: DIABETES MELLITUS NON-INSULIN-DEPENDENT
     Dosage: SEE IMAGE
     Dates: start: 20051023, end: 20051028
  2. BYETTA [Suspect]
     Indication: DIABETES MELLITUS NON-INSULIN-DEPENDENT
     Dosage: SEE IMAGE
     Dates: start: 20051028

REACTIONS (4)
  - BLOOD GLUCOSE INCREASED [None]
  - DIZZINESS [None]
  - HEADACHE [None]
  - WEIGHT DECREASED [None]
